FAERS Safety Report 4809893-7 (Version None)
Quarter: 2005Q4

REPORT INFORMATION
  Report Type: 
  Country: None (occurrence: None)
  Receive Date: 20051026
  Receipt Date: 20051011
  Transmission Date: 20060501
  Serious: Yes (Other)
  Sender: FDA-Public Use
  Company Number: GB-JNJFOC-20051004960

PATIENT
  Sex: Female

DRUGS (1)
  1. MICRONOR [Suspect]
     Indication: CONTRACEPTION
     Route: 048

REACTIONS (3)
  - HAEMORRHAGE [None]
  - SCAR [None]
  - SMEAR CERVIX ABNORMAL [None]
